FAERS Safety Report 21230546 (Version 2)
Quarter: 2022Q3

REPORT INFORMATION
  Report Type: Spontaneous
  Country: RO (occurrence: RO)
  Receive Date: 20220818
  Receipt Date: 20220902
  Transmission Date: 20221027
  Serious: Yes (Hospitalization, Other)
  Sender: FDA-Public Use
  Company Number: RO-MEDO2008-L202207050

PATIENT
  Age: 12 Year
  Sex: Female

DRUGS (6)
  1. PANTOPRAZOLE [Suspect]
     Active Substance: PANTOPRAZOLE
     Indication: Product used for unknown indication
     Dosage: UNK
     Route: 040
  2. ESOMEPRAZOLE [Suspect]
     Active Substance: ESOMEPRAZOLE
     Indication: Oesophagitis
     Dosage: UNK
     Route: 065
  3. CEFTRIAXONE [Suspect]
     Active Substance: CEFTRIAXONE
     Indication: Antibiotic prophylaxis
     Dosage: 100 MILLIGRAM/KILOGRAM, QD
     Route: 065
  4. CEFTRIAXONE [Suspect]
     Active Substance: CEFTRIAXONE
     Dosage: 100 MILLIGRAM/KILOGRAM, QD
     Route: 065
  5. OCTREOTIDE [Concomitant]
     Active Substance: OCTREOTIDE
     Indication: Anaemia
     Dosage: 2 MICROGRAM/KILOGRAM, 2 ?G/KG FOLLOWED BY 2 ?G/KG/H UNTIL HAEMOSTASIS WAS OBTAINED, THEN THE DOSE WA
     Route: 040
  6. OCTREOTIDE [Concomitant]
     Active Substance: OCTREOTIDE
     Dosage: 2 ?G/KG FOLLOWED BY 2 ?G/KG/H UNTIL HAEMOSTASIS WAS OBTAINED, THEN THE DOSE WAS REDUCED TO 50% EVERY
     Route: 040

REACTIONS (2)
  - Cholelithiasis [Unknown]
  - Thrombocytopenia [Unknown]
